FAERS Safety Report 17355198 (Version 1)
Quarter: 2020Q1

REPORT INFORMATION
  Report Type: Spontaneous
  Country: US (occurrence: US)
  Receive Date: 20200116
  Receipt Date: 20200116
  Transmission Date: 20200409
  Serious: No
  Sender: FDA-Public Use
  Company Number: None

PATIENT
  Sex: Female

DRUGS (1)
  1. VERZENIO [Suspect]
     Active Substance: ABEMACICLIB
     Indication: BREAST CANCER
     Route: 048
     Dates: start: 20181115

REACTIONS (6)
  - Decreased appetite [None]
  - Weight decreased [None]
  - Nausea [None]
  - Diarrhoea [None]
  - Vomiting [None]
  - Haematochezia [None]
